FAERS Safety Report 18507727 (Version 2)
Quarter: 2021Q1

REPORT INFORMATION
  Report Type: Report from Study
  Country: US (occurrence: US)
  Receive Date: 20201116
  Receipt Date: 20210106
  Transmission Date: 20210419
  Serious: No
  Sender: FDA-Public Use
  Company Number: NVSC2020US302619

PATIENT
  Sex: Female

DRUGS (1)
  1. COSENTYX [Suspect]
     Active Substance: SECUKINUMAB
     Indication: PSORIATIC ARTHROPATHY
     Dosage: 150 MG, OTHER (EVERY WEEK X 5 WEEKS THEN EVERY 4)
     Route: 058
     Dates: start: 202010

REACTIONS (5)
  - Psoriasis [Recovered/Resolved]
  - Rash [Recovered/Resolved]
  - Arthralgia [Unknown]
  - Injection site bruising [Recovered/Resolved]
  - Injection site pruritus [Recovered/Resolved]
